FAERS Safety Report 8394606-5 (Version None)
Quarter: 2012Q2

REPORT INFORMATION
  Report Type: 
  Country: None (occurrence: None)
  Receive Date: 20120530
  Receipt Date: 20120523
  Transmission Date: 20120825
  Serious: Yes (Hospitalization)
  Sender: FDA-Public Use
  Company Number: DE-ELI_LILLY_AND_COMPANY-DE201004003042

PATIENT
  Sex: Female
  Weight: 69 kg

DRUGS (2)
  1. DOCETAXEL [Suspect]
     Indication: BREAST CANCER
     Dosage: 130 MG, UNKNOWN
     Route: 042
     Dates: start: 20100202, end: 20100316
  2. GEMCITABINE HYDROCHLORIDE [Suspect]
     Indication: BREAST CANCER
     Dosage: 1700 MG, UNKNOWN
     Route: 042
     Dates: start: 20100202, end: 20100323

REACTIONS (3)
  - COUGH [None]
  - DYSPNOEA [None]
  - ALVEOLITIS [None]
